FAERS Safety Report 7596452 (Version 2)
Quarter: 2012Q4

REPORT INFORMATION
  Report Type: Report from Study
  Country: JP (occurrence: JP)
  Receive Date: 20100920
  Receipt Date: 20121026
  Transmission Date: 20130627
  Serious: Yes (Other)
  Sender: FDA-Public Use
  Company Number: JP-GENZYME-THYM-1001519

PATIENT
  Age: 10 Year
  Sex: Male
  Weight: 39 kg

DRUGS (13)
  1. THYMOGLOBULINE [Suspect]
     Indication: BONE MARROW CONDITIONING REGIMEN
     Dosage: 50 mg, qd
     Route: 042
     Dates: start: 20090811, end: 20090812
  2. SULFAMETOXAZOL [Concomitant]
     Indication: ANTIFUNGAL PROPHYLAXIS
     Dosage: UNK
     Dates: start: 20090811
  3. URSODEOXYCHOLIC ACID [Concomitant]
     Indication: PROPHYLAXIS
     Dosage: UNK
     Dates: start: 20090811
  4. SPARFLOXACIN [Concomitant]
     Indication: PROPHYLAXIS
     Dosage: UNK
     Dates: start: 20090811, end: 20090812
  5. ACICLOVIR [Concomitant]
     Indication: PROPHYLAXIS
     Dosage: UNK
     Dates: start: 20090811, end: 20090812
  6. DANAPAROID SODIUM [Concomitant]
     Indication: PROPHYLAXIS
     Dosage: UNK
     Dates: start: 20090811, end: 20091125
  7. METHYLPREDNISOLONE SODIUM SUCCINATE [Concomitant]
     Indication: PREMEDICATION
     Dosage: UNK
     Dates: start: 20090811, end: 20090812
  8. HYDROXYZINE PAMOATE [Concomitant]
     Indication: PREMEDICATION
     Dosage: UNK
     Dates: start: 20090811, end: 20090811
  9. MICAFUNGIN SODIUM [Concomitant]
     Indication: PROPHYLAXIS
     Dosage: UNK
     Dates: start: 20090729, end: 20091118
  10. FAMODIN [Concomitant]
     Indication: GASTROOESOPHAGEAL REFLUX DISEASE
     Dosage: UNK
     Dates: start: 20090723, end: 20090824
  11. FILGRASTIM [Concomitant]
     Indication: PRODUCT USED FOR UNKNOWN INDICATION
     Dosage: UNK
     Dates: start: 20090819, end: 20090828
  12. TACROLIMUS [Concomitant]
     Indication: PROPHYLAXIS
     Dosage: UNK
     Dates: start: 20090813, end: 20091008
  13. FREEZE-DRIED SULPHONATED HUMAN [Concomitant]
     Indication: INFECTION PROPHYLAXIS
     Dosage: UNK
     Dates: start: 20090802

REACTIONS (3)
  - Febrile neutropenia [Recovered/Resolved]
  - Post transplant lymphoproliferative disorder [Recovered/Resolved]
  - Cytomegalovirus test positive [Recovered/Resolved]
